FAERS Safety Report 8794336 (Version 2)
Quarter: 2013Q1

REPORT INFORMATION
  Report Type: Report from Study
  Country: JP (occurrence: JP)
  Receive Date: 20120917
  Receipt Date: 20130315
  Transmission Date: 20140127
  Serious: Yes (Other)
  Sender: FDA-Public Use
  Company Number: JP-009507513-1209JPN005664

PATIENT
  Age: 64 Year
  Sex: Male
  Weight: 66 kg

DRUGS (4)
  1. REBETOL [Suspect]
     Indication: CHRONIC HEPATITIS C
     Dosage: 400 MG, BID
     Route: 048
     Dates: start: 20110712, end: 20110912
  2. FERON [Suspect]
     Indication: CHRONIC HEPATITIS C
     Dosage: 6 DF, QW- MILLON-BILLION UNIT
     Route: 041
     Dates: start: 20110712, end: 20110912
  3. REBETOL [Concomitant]
     Indication: CHRONIC HEPATITIS C
     Dosage: 400 MG, BID
     Route: 048
     Dates: start: 20110913, end: 20120201
  4. PEGINTRON [Concomitant]
     Indication: CHRONIC HEPATITIS C
     Dosage: 80 MICROGRAM, QW
     Route: 030
     Dates: start: 20110913, end: 20120201

REACTIONS (6)
  - Nephrotic syndrome [Recovered/Resolved]
  - Proteinuria [Not Recovered/Not Resolved]
  - Oedema [Recovered/Resolved]
  - Hypoalbuminaemia [Recovering/Resolving]
  - Hypoproteinaemia [Not Recovered/Not Resolved]
  - Hyperglycaemia [Recovering/Resolving]
